FAERS Safety Report 20217578 (Version 3)
Quarter: 2022Q1

REPORT INFORMATION
  Report Type: Spontaneous
  Country: JP (occurrence: JP)
  Receive Date: 20211222
  Receipt Date: 20220314
  Transmission Date: 20220424
  Serious: Yes (Other)
  Sender: FDA-Public Use
  Company Number: JP-JNJFOC-20210716322

PATIENT
  Age: 85 Year
  Sex: Female
  Weight: 30 kg

DRUGS (5)
  1. TRAMCET [Suspect]
     Active Substance: ACETAMINOPHEN\TRAMADOL
     Indication: Pain
     Route: 048
  2. TRAMCET [Suspect]
     Active Substance: ACETAMINOPHEN\TRAMADOL
     Dosage: IN THE EVENING
     Route: 048
     Dates: start: 20210705, end: 20210804
  3. TRAMCET [Suspect]
     Active Substance: ACETAMINOPHEN\TRAMADOL
     Dosage: IN THE MORNING AND EVENING
     Route: 048
     Dates: start: 20210805, end: 20210826
  4. TRAMCET [Suspect]
     Active Substance: ACETAMINOPHEN\TRAMADOL
     Dosage: AT 6 PM
     Route: 048
     Dates: start: 20210827, end: 20210916
  5. TRAMCET [Suspect]
     Active Substance: ACETAMINOPHEN\TRAMADOL
     Dosage: IN THE EVENING
     Route: 048
     Dates: start: 202112

REACTIONS (18)
  - Shock [Unknown]
  - Withdrawal syndrome [Unknown]
  - Nausea [Recovered/Resolved]
  - Decreased appetite [Not Recovered/Not Resolved]
  - Nausea [Recovered/Resolved]
  - Conversion disorder [Unknown]
  - Delusion [Unknown]
  - Abnormal behaviour [Unknown]
  - Constipation [Unknown]
  - Abdominal distension [Unknown]
  - Abdominal pain [Unknown]
  - Hypotension [Unknown]
  - Malaise [Unknown]
  - Vomiting [Unknown]
  - Neck pain [Unknown]
  - Somnolence [Unknown]
  - Inappropriate schedule of product administration [Unknown]
  - Off label use [Unknown]

NARRATIVE: CASE EVENT DATE: 20210101
